FAERS Safety Report 16129803 (Version 1)
Quarter: 2019Q1

REPORT INFORMATION
  Report Type: Spontaneous
  Country: US (occurrence: US)
  Receive Date: 20190328
  Receipt Date: 20190328
  Transmission Date: 20190418
  Serious: Yes (Hospitalization, Other)
  Sender: FDA-Public Use
  Company Number: US-HIKMA PHARMACEUTICALS USA INC.-US-H14001-19-01754

PATIENT
  Age: 29 Year
  Sex: Female
  Weight: 63.5 kg

DRUGS (8)
  1. OMEPRAZOLE. [Concomitant]
     Active Substance: OMEPRAZOLE
     Indication: MUSCLE SPASMS
     Dosage: ()
     Route: 065
  2. OXYCODONE [Suspect]
     Active Substance: OXYCODONE
     Indication: DRUG DEPENDENCE
     Dosage: ESCALATING AMOUNTS
     Route: 048
  3. OXYCODONE [Suspect]
     Active Substance: OXYCODONE
     Dosage: APPROXIMATELY 100 DOLLARS WORTH OF NON-PRESCRIBED OXYCODONE
     Route: 048
  4. CYCLOBENZAPRINE. [Concomitant]
     Active Substance: CYCLOBENZAPRINE
     Indication: MUSCLE SPASMS
     Dosage: ()
     Route: 065
  5. OXYCODONE [Suspect]
     Active Substance: OXYCODONE
     Route: 048
  6. NAPROXEN. [Concomitant]
     Active Substance: NAPROXEN
     Indication: MUSCLE SPASMS
     Dosage: ()
  7. VARENICLINE [Concomitant]
     Active Substance: VARENICLINE
     Indication: MUSCLE SPASMS
     Dosage: ()
     Route: 065
  8. BUPRENORPHINE. [Suspect]
     Active Substance: BUPRENORPHINE
     Indication: DRUG DEPENDENCE
     Route: 065

REACTIONS (17)
  - Impulsive behaviour [Recovered/Resolved]
  - Limb discomfort [Recovered/Resolved]
  - Decreased interest [Recovered/Resolved]
  - Drug use disorder [Recovered/Resolved]
  - Pyrexia [Recovered/Resolved]
  - Gait disturbance [Recovered/Resolved]
  - Prescription drug used without a prescription [Recovered/Resolved]
  - Cough [Recovered/Resolved]
  - Toxicity to various agents [Recovered/Resolved]
  - Feeling guilty [Recovered/Resolved]
  - Drug withdrawal syndrome [Recovered/Resolved]
  - Road traffic accident [Recovered/Resolved]
  - Increased appetite [Recovered/Resolved]
  - Pressure of speech [Recovered/Resolved]
  - Drug abuse [Recovered/Resolved]
  - Energy increased [Recovered/Resolved]
  - Tachyphrenia [Recovered/Resolved]
